FAERS Safety Report 9448162 (Version 1)
Quarter: 2013Q3

REPORT INFORMATION
  Report Type: Spontaneous
  Country: US (occurrence: None)
  Receive Date: 20130806
  Receipt Date: 20130806
  Transmission Date: 20140515
  Serious: Yes (Other)
  Sender: FDA-Public Use
  Company Number: ABR_01063_2013

PATIENT
  Sex: 0

DRUGS (4)
  1. ERYTHROCIN [Suspect]
     Indication: PRODUCT USED FOR UNKNOWN INDICATION
     Dosage: DF INTRAVDNOUS DRIP
     Route: 041
  2. ERYTHROCIN [Suspect]
     Indication: OFF LABEL USE
     Dosage: DF INTRAVDNOUS DRIP
     Route: 041
  3. OXYCONTIN [Concomitant]
  4. OXYCODONE HYDROCHLRODIE [Concomitant]

REACTIONS (2)
  - Off label use [None]
  - Delirium [None]
